FAERS Safety Report 16968895 (Version 1)
Quarter: 2019Q4

REPORT INFORMATION
  Report Type: Report from Study
  Country: DE (occurrence: DE)
  Receive Date: 20191029
  Receipt Date: 20191029
  Transmission Date: 20200122
  Serious: Yes (Hospitalization, Other)
  Sender: FDA-Public Use
  Company Number: DE-BAXTER-2018BAX029287

PATIENT
  Age: 54 Year
  Sex: Male
  Weight: 79 kg

DRUGS (35)
  1. DOXIL [Suspect]
     Active Substance: DOXORUBICIN HYDROCHLORIDE
     Dosage: LIPOSOMAL INJECTION, 100 MG, UNK, INFUSION RATE 10.00 ML/MIN FROM 11:05 TO 11:10
     Route: 041
     Dates: start: 20180926, end: 20180926
  2. PREDNISONE. [Suspect]
     Active Substance: PREDNISONE
     Indication: PRODUCT USED FOR UNKNOWN INDICATION
     Dosage: 500 MG, UNK
     Route: 048
     Dates: start: 20180829, end: 20180902
  3. PREDNISONE. [Suspect]
     Active Substance: PREDNISONE
     Route: 048
     Dates: start: 20181010, end: 20181014
  4. DOXIL [Suspect]
     Active Substance: DOXORUBICIN HYDROCHLORIDE
     Dosage: LIPOSOMAL INJECTION, 100 MG
     Route: 041
     Dates: start: 20181024, end: 20181024
  5. RIXIMYO [Suspect]
     Active Substance: RITUXIMAB
     Dosage: INFUSION RATE 4.16 ML/MIN FROM 09:00 TO 12:
     Route: 041
     Dates: start: 20181009, end: 20181009
  6. VINCRISTINE [Suspect]
     Active Substance: VINCRISTINE
     Indication: DIFFUSE LARGE B-CELL LYMPHOMA
     Dosage: 2 MG, UNK, INFUSION RATE 8.3 ML/MIN FROM 11:02 TO 11:08
     Route: 065
     Dates: start: 20180829, end: 20180829
  7. PREDNISOLUT [Concomitant]
     Active Substance: PREDNISOLONE
     Indication: PROPHYLAXIS
     Dosage: UNK
     Route: 042
     Dates: start: 20180828
  8. DOXIL [Suspect]
     Active Substance: DOXORUBICIN HYDROCHLORIDE
     Indication: PROPHYLAXIS
     Dosage: LIPOSOMAL INJECTION, 100 MG, UNK, INFUSION RATE 10.00 ML/MIN FROM 11:00 TO 11:05
     Route: 041
     Dates: start: 20180912, end: 20180912
  9. ENDOXAN 1G [Suspect]
     Active Substance: CYCLOPHOSPHAMIDE
     Dosage: INFUSION RATE 8.3 ML/MIN FROM 09:30 TO 10:30
     Route: 041
     Dates: start: 20181010, end: 20181010
  10. ENDOXAN 1G [Suspect]
     Active Substance: CYCLOPHOSPHAMIDE
     Dosage: INFUSION RATE 8.3 ML/MIN FROM 11:05 TO 12:05
     Route: 041
     Dates: start: 20181107, end: 20181107
  11. RIXIMYO [Suspect]
     Active Substance: RITUXIMAB
     Dosage: INFUSION RATE 4.16 ML/MIN FROM 09:00 TO 12:
     Route: 041
     Dates: start: 20181023, end: 20181023
  12. RANITIDIN [Concomitant]
     Active Substance: RANITIDINE HYDROCHLORIDE
     Indication: PROPHYLAXIS
     Dosage: UNK
     Route: 042
     Dates: start: 20180828
  13. PALONOSETRON. [Concomitant]
     Active Substance: PALONOSETRON HYDROCHLORIDE
     Indication: PROPHYLAXIS
     Dosage: UNK
     Route: 042
     Dates: start: 20180829
  14. RIXIMYO [Suspect]
     Active Substance: RITUXIMAB
     Dosage: INFUSION RATE 4.16 ML/MIN FROM 09:00 TO 12:
     Route: 041
     Dates: start: 20181106
  15. MESNA. [Concomitant]
     Active Substance: MESNA
     Indication: PROPHYLAXIS
     Dosage: UNK
     Route: 048
     Dates: start: 20180829, end: 20181107
  16. DOXIL [Suspect]
     Active Substance: DOXORUBICIN HYDROCHLORIDE
     Indication: DIFFUSE LARGE B-CELL LYMPHOMA
     Dosage: LIPOSOMAL INJECTION, 100 MG, UNK, INFUSION RATE 7.1 ML/MIN FROM 10:56 TO 11:02
     Route: 041
     Dates: start: 20180829, end: 20180829
  17. ENDOXAN 1G [Suspect]
     Active Substance: CYCLOPHOSPHAMIDE
     Dosage: INFUSION RATE 8.3 ML/MIN FROM 09:00 TO 10:00
     Route: 041
     Dates: start: 20181024, end: 20181024
  18. ENDOXAN 1G [Suspect]
     Active Substance: CYCLOPHOSPHAMIDE
     Indication: DIFFUSE LARGE B-CELL LYMPHOMA
     Dosage: 1500 MG, UNK, INFUSION RATE 8.3 ML/MIN FROM 09:15 TO 10:15
     Route: 041
     Dates: start: 20180926, end: 20180926
  19. ENDOXAN 1G [Suspect]
     Active Substance: CYCLOPHOSPHAMIDE
     Dosage: 1500 MG, UNK, INFUSION RATE 8.3 ML/MIN FROM 09:00 TO 10:00
     Route: 041
     Dates: start: 20180912, end: 20180912
  20. RIXIMYO [Suspect]
     Active Substance: RITUXIMAB
     Indication: DIFFUSE LARGE B-CELL LYMPHOMA
     Dosage: 750 MG, UNK, INFUSION RATE 3.0 ML/MIN FROM 09:00 TO 13:15
     Route: 041
     Dates: start: 20180828, end: 20180828
  21. DIMETINDENE [Concomitant]
     Active Substance: DIMETHINDENE
     Indication: PROPHYLAXIS
     Dosage: UNK
     Route: 042
     Dates: start: 20180428, end: 20180428
  22. PREDNISOLON [Concomitant]
     Active Substance: PREDNISOLONE
     Indication: GENERAL PHYSICAL CONDITION ABNORMAL
     Dosage: UNK
     Route: 048
     Dates: start: 20180823, end: 20180827
  23. DOXIL [Suspect]
     Active Substance: DOXORUBICIN HYDROCHLORIDE
     Dosage: LIPOSOMAL INJECTION, 100 MG, INFUSION RATE 10.00 ML/MIN FROM 12:40 TO 12:45
     Route: 041
     Dates: start: 20181107, end: 20181107
  24. PREDNISONE. [Suspect]
     Active Substance: PREDNISONE
     Route: 048
     Dates: start: 20180823, end: 20180827
  25. PREDNISONE. [Suspect]
     Active Substance: PREDNISONE
     Route: 048
     Dates: start: 20181107, end: 20181111
  26. RIXIMYO [Suspect]
     Active Substance: RITUXIMAB
     Indication: PRODUCT USED FOR UNKNOWN INDICATION
     Dosage: 750 MG, UNK, INFUSION RATE 2.88 ML/MIN FROM 09:00 TO 13:20
     Route: 041
     Dates: start: 20180911, end: 20180911
  27. NEULASTA [Concomitant]
     Active Substance: PEGFILGRASTIM
     Indication: PROPHYLAXIS
     Dosage: UNK
     Route: 058
     Dates: start: 20180830, end: 20181108
  28. DOXIL [Suspect]
     Active Substance: DOXORUBICIN HYDROCHLORIDE
     Dosage: LIPOSOMAL INJECTION, 100 MG, INFUSION RATE 8.3 ML/MIN FROM 10:30 TO 10:36
     Route: 041
     Dates: start: 20181010, end: 20181010
  29. ENDOXAN 1G [Suspect]
     Active Substance: CYCLOPHOSPHAMIDE
     Indication: PRODUCT USED FOR UNKNOWN INDICATION
     Dosage: 1500 MG, UNK, INFUSION RATE 8.3 ML/MIN FROM 08:30 TO 09:30
     Route: 041
     Dates: start: 20180829, end: 20180829
  30. PREDNISONE. [Suspect]
     Active Substance: PREDNISONE
     Indication: DIFFUSE LARGE B-CELL LYMPHOMA
     Dosage: 500 MG, UNK
     Route: 048
     Dates: start: 20180926, end: 20180930
  31. PREDNISONE. [Suspect]
     Active Substance: PREDNISONE
     Dosage: 500 MG, UNK
     Route: 048
     Dates: start: 20180912, end: 20180916
  32. PREDNISONE. [Suspect]
     Active Substance: PREDNISONE
     Route: 048
     Dates: start: 20181024, end: 20181028
  33. RIXIMYO [Suspect]
     Active Substance: RITUXIMAB
     Dosage: 750 MG, UNK, INFUSION RATE 3.12 ML/MIN FROM 09:20 TO 13:20
     Route: 041
     Dates: start: 20180925, end: 20180925
  34. PARACETAMOL [Concomitant]
     Active Substance: ACETAMINOPHEN
     Indication: PROPHYLAXIS
     Dosage: UNK
     Route: 048
     Dates: start: 20180828
  35. PANTOPRAZOL [Concomitant]
     Active Substance: PANTOPRAZOLE SODIUM
     Indication: PROPHYLAXIS
     Dosage: UNK
     Route: 048
     Dates: start: 20180823

REACTIONS (9)
  - Polyneuropathy [Recovered/Resolved]
  - Pneumonia [Recovered/Resolved]
  - Anaemia [Recovered/Resolved]
  - Off label use [Unknown]
  - Fatigue [Recovered/Resolved]
  - Diarrhoea [Recovered/Resolved]
  - Vomiting [Recovered/Resolved]
  - Pyrexia [Recovered/Resolved]
  - Product use in unapproved indication [Unknown]

NARRATIVE: CASE EVENT DATE: 20180829
